FAERS Safety Report 6943592-0 (Version None)
Quarter: 2010Q3

REPORT INFORMATION
  Report Type: 
  Country: None (occurrence: None)
  Receive Date: 20100826
  Receipt Date: 20100817
  Transmission Date: 20110219
  Serious: Yes (Other)
  Sender: FDA-Public Use
  Company Number: US-AMGEN-KDL432002

PATIENT
  Sex: Female

DRUGS (1)
  1. ENBREL [Suspect]
     Indication: PSORIASIS
     Route: 058
     Dates: start: 20090401

REACTIONS (8)
  - ABDOMINAL ADHESIONS [None]
  - COLITIS ULCERATIVE [None]
  - DIARRHOEA [None]
  - INJECTION SITE SWELLING [None]
  - NASOPHARYNGITIS [None]
  - PNEUMONIA [None]
  - PSORIASIS [None]
  - THERAPEUTIC RESPONSE DECREASED [None]
